FAERS Safety Report 6570223-4 (Version None)
Quarter: 2010Q1

REPORT INFORMATION
  Report Type: 
  Country: None (occurrence: None)
  Receive Date: 20100204
  Receipt Date: 20100126
  Transmission Date: 20100710
  Serious: Yes (Life-Threatening, Hospitalization, Other)
  Sender: FDA-Public Use
  Company Number: GB-ABBOTT-07P-167-0378706-00

PATIENT
  Sex: Female
  Weight: 52.4 kg

DRUGS (6)
  1. KALETRA [Suspect]
     Indication: PROPHYLAXIS AGAINST HIV INFECTION
     Route: 048
     Dates: start: 20070728, end: 20070811
  2. KALETRA [Suspect]
     Dosage: 400 MG/100 MG
     Route: 048
     Dates: start: 20070728, end: 20070811
  3. DOCETAXEL [Interacting]
     Indication: DRUG THERAPY
     Dosage: MILLIGRAN/SQ.METER (MG/M2)
     Route: 042
     Dates: start: 20070618, end: 20070730
  4. COMBIVIR [Suspect]
     Indication: PROPHYLAXIS AGAINST HIV INFECTION
     Dosage: 300 MG / 150 MG, TWICE DAILY
     Route: 042
     Dates: start: 20070708, end: 20070728
  5. COMBIVIR [Suspect]
     Dates: start: 20070728, end: 20070808
  6. CETRIZIN [Concomitant]
     Indication: PROPHYLAXIS AGAINST HIV INFECTION

REACTIONS (13)
  - ARTHRALGIA [None]
  - BLISTER [None]
  - DRUG HYPERSENSITIVITY [None]
  - DRUG INTERACTION [None]
  - DRUG TOXICITY [None]
  - ERYTHEMA [None]
  - MUCOSAL INFLAMMATION [None]
  - MYALGIA [None]
  - NEUTROPENIA [None]
  - OEDEMA [None]
  - PYREXIA [None]
  - RASH MACULO-PAPULAR [None]
  - SKIN EXFOLIATION [None]
